FAERS Safety Report 10209933 (Version 2)
Quarter: 2015Q1

REPORT INFORMATION
  Report Type: Spontaneous
  Country: FR (occurrence: FR)
  Receive Date: 20140602
  Receipt Date: 20150209
  Transmission Date: 20150720
  Serious: Yes (Congenital Anomaly)
  Sender: FDA-Public Use
  Company Number: PHHY2014FR062674

PATIENT
  Sex: Male
  Weight: 2.35 kg

DRUGS (6)
  1. TRANDATE [Concomitant]
     Active Substance: LABETALOL HYDROCHLORIDE
     Dosage: (MATERNAL DOSE: UNKNOWN)
     Route: 064
     Dates: start: 20140325
  2. NISISCO [Suspect]
     Active Substance: HYDROCHLOROTHIAZIDE\VALSARTAN
     Dosage: MATERNAL DOSE: 1 DF (VALS 80 MG / HYDR 12.5 MG), DAILY
     Route: 064
  3. PANTOPRAZOLE [Concomitant]
     Active Substance: PANTOPRAZOLE SODIUM
     Dosage: (MATERNAL DOSE: UNKNOWN)
     Route: 064
     Dates: start: 201306, end: 20140325
  4. LOXEN [Concomitant]
     Active Substance: NICARDIPINE HYDROCHLORIDE
     Dosage: (MATERNAL DOSE: UNKNOWN)
     Route: 064
     Dates: start: 20140325
  5. LERCAN [Concomitant]
     Active Substance: LERCANIDIPINE
     Dosage: (MATERNAL DOSE: UNKNOWN)
     Route: 064
     Dates: start: 201306, end: 20140325
  6. ADEPAL [Concomitant]
     Active Substance: ETHINYL ESTRADIOL\LEVONORGESTREL
     Dosage: (MATERNAL DOSE: UNKNOWN)
     Route: 064
     Dates: start: 201311

REACTIONS (3)
  - Blood creatinine increased [Unknown]
  - Renal aplasia [Unknown]
  - Skeletal dysplasia [Unknown]

NARRATIVE: CASE EVENT DATE: 20140414
